FAERS Safety Report 5050928-7 (Version None)
Quarter: 2006Q3

REPORT INFORMATION
  Report Type: 
  Country: None (occurrence: None)
  Receive Date: 20060713
  Receipt Date: 20060614
  Transmission Date: 20061208
  Serious: Yes (Other)
  Sender: FDA-Public Use
  Company Number: BE-ABBOTT-06P-013-0336854-00

PATIENT
  Sex: Female

DRUGS (3)
  1. SIBUTRAMINE [Suspect]
     Indication: OBESITY
     Route: 048
     Dates: start: 20051216
  2. LEVOTHYROXINE SODIUM [Concomitant]
     Indication: HYPERTHYROIDISM
  3. UNSPECIFIED CONTRACEPTIVES [Concomitant]
     Indication: DRUG USE FOR UNKNOWN INDICATION
     Route: 048

REACTIONS (2)
  - OOPHORECTOMY [None]
  - SMALL INTESTINAL PERFORATION [None]
